FAERS Safety Report 15275237 (Version 7)
Quarter: 2022Q2

REPORT INFORMATION
  Report Type: Spontaneous
  Country: US (occurrence: US)
  Receive Date: 20180814
  Receipt Date: 20220526
  Transmission Date: 20220720
  Serious: Yes (Death, Life-Threatening, Hospitalization, Other)
  Sender: FDA-Public Use
  Company Number: US-NOVARTISPH-PHEH2018US032264

PATIENT
  Age: 4 Year
  Sex: Female
  Weight: 22 kg

DRUGS (4)
  1. KYMRIAH [Suspect]
     Active Substance: TISAGENLECLEUCEL
     Indication: Acute lymphocytic leukaemia recurrent
     Dosage: UNK UNK, ONCE/SINGLE (DOSE WAS 2.70E+07 CAR T CELLS)
     Route: 042
     Dates: start: 20180409, end: 20180409
  2. METHOTREXATE [Concomitant]
     Active Substance: METHOTREXATE
     Indication: Palliative care
     Dosage: UNK
     Route: 065
  3. PEG/L-ASPARAGINASE [Concomitant]
     Active Substance: PEGASPARGASE
     Indication: Palliative care
     Dosage: UNK(EVERY FEW WEEKS)
     Route: 065
  4. DEXAMETHASONE [Concomitant]
     Active Substance: DEXAMETHASONE
     Indication: Palliative care
     Dosage: UNK (OCCASIONAL PULSES)
     Route: 065

REACTIONS (13)
  - Acute lymphocytic leukaemia recurrent [Fatal]
  - Malignant neoplasm progression [Fatal]
  - Oxygen saturation decreased [Unknown]
  - Respiratory disorder [Unknown]
  - Respiratory arrest [Unknown]
  - Cardiac arrest [Unknown]
  - Hypotension [Recovered/Resolved]
  - Nausea [Recovered/Resolved]
  - Tachycardia [Recovered/Resolved]
  - Headache [Recovered/Resolved]
  - Pyrexia [Recovered/Resolved]
  - Chills [Recovered/Resolved]
  - Pneumonia [Unknown]

NARRATIVE: CASE EVENT DATE: 20180412
